FAERS Safety Report 5065357-X (Version None)
Quarter: 2006Q3

REPORT INFORMATION
  Report Type: 
  Country: None (occurrence: None)
  Receive Date: 20060707
  Receipt Date: 20060529
  Transmission Date: 20061208
  Serious: Yes (Hospitalization, Other)
  Sender: FDA-Public Use
  Company Number: SUS1-2006-00257

PATIENT
  Age: 20 Year
  Sex: Male

DRUGS (2)
  1. PENTASA [Suspect]
     Indication: CROHN'S DISEASE
     Dosage: 3 G DAILY, ORAL
     Route: 048
     Dates: start: 20060116, end: 20060216
  2. FAMOTIDINE [Suspect]
     Indication: GASTRITIS
     Dosage: 40 MG DAILY, INTRAVENOUS
     Route: 042
     Dates: start: 20060212, end: 20060222

REACTIONS (1)
  - GRANULOCYTOPENIA [None]
